FAERS Safety Report 13268283 (Version 2)
Quarter: 2017Q1

REPORT INFORMATION
  Report Type: Report from Study
  Country: US (occurrence: US)
  Receive Date: 20170224
  Receipt Date: 20170307
  Transmission Date: 20170428
  Serious: No
  Sender: FDA-Public Use
  Company Number: PHEH2017US005363

PATIENT
  Sex: Female

DRUGS (1)
  1. GILENYA [Suspect]
     Active Substance: FINGOLIMOD HYDROCHLORIDE
     Indication: MULTIPLE SCLEROSIS
     Dosage: 0.5 MG, QD
     Route: 048
     Dates: start: 20161221

REACTIONS (8)
  - Disturbance in attention [Unknown]
  - Hot flush [Unknown]
  - Stress [Unknown]
  - Drug ineffective [Unknown]
  - Erythema [Unknown]
  - Rash [Unknown]
  - Tremor [Unknown]
  - Fatigue [Unknown]
